FAERS Safety Report 20128624 (Version 2)
Quarter: 2022Q1

REPORT INFORMATION
  Report Type: Spontaneous
  Country: DE (occurrence: DE)
  Receive Date: 20211130
  Receipt Date: 20220125
  Transmission Date: 20220424
  Serious: Yes (Hospitalization, Other)
  Sender: FDA-Public Use
  Company Number: DE-VALIDUS PHARMACEUTICALS LLC-DE-VDP-2021-014642

PATIENT

DRUGS (37)
  1. FUROSEMIDE [Suspect]
     Active Substance: FUROSEMIDE
     Indication: Fluid retention
     Dosage: 40 MG
     Route: 065
  2. TAMSULOSIN HYDROCHLORIDE [Suspect]
     Active Substance: TAMSULOSIN HYDROCHLORIDE
     Indication: Prostate infection
     Dosage: 0.4 MG, QD
     Route: 065
  3. NITRENDIPINE [Suspect]
     Active Substance: NITRENDIPINE
     Indication: Blood pressure measurement
     Dosage: UNK
     Route: 065
  4. NITRENDIPINE [Suspect]
     Active Substance: NITRENDIPINE
     Dosage: 20 MG
     Route: 065
  5. NITRENDIPINE [Suspect]
     Active Substance: NITRENDIPINE
     Dosage: 2 DF(20 MG), QD
     Route: 065
  6. HYGROTON [Suspect]
     Active Substance: CHLORTHALIDONE
     Indication: Blood pressure measurement
     Dosage: 0.5 DF, QD
     Route: 065
  7. CARVEDILOL [Suspect]
     Active Substance: CARVEDILOL
     Indication: Blood pressure measurement
     Dosage: 25 MG, QD
     Route: 065
  8. CARVEDILOL [Suspect]
     Active Substance: CARVEDILOL
     Dosage: 25 MG, QD
     Route: 065
  9. TORSEMIDE [Suspect]
     Active Substance: TORSEMIDE
     Indication: Product used for unknown indication
     Dosage: 0.5 DF
     Route: 065
  10. CHOLECALCIFEROL [Suspect]
     Active Substance: CHOLECALCIFEROL
     Indication: Product used for unknown indication
     Dosage: UNK
     Route: 065
  11. PANTOPRAZOLE [Suspect]
     Active Substance: PANTOPRAZOLE
     Indication: Abdominal discomfort
     Dosage: 20 MG, QD
     Route: 065
  12. SODIUM BICARBONATE [Suspect]
     Active Substance: SODIUM BICARBONATE
     Indication: Product used for unknown indication
     Dosage: 1 G, QD
     Route: 065
  13. VALGANCICLOVIR HYDROCHLORIDE [Suspect]
     Active Substance: VALGANCICLOVIR HYDROCHLORIDE
     Indication: Product used for unknown indication
     Dosage: UNK
     Route: 065
  14. FLUVASTATIN SODIUM [Suspect]
     Active Substance: FLUVASTATIN SODIUM
     Indication: Blood cholesterol
     Dosage: UNK
     Route: 065
  15. CANDESARTAN CILEXETIL [Suspect]
     Active Substance: CANDESARTAN CILEXETIL
     Indication: Blood pressure measurement
     Dosage: 32 MG, QD
     Route: 065
  16. CANDESARTAN CILEXETIL [Suspect]
     Active Substance: CANDESARTAN CILEXETIL
     Dosage: 32 MG, QD
     Route: 065
  17. DOXAZOSIN [Suspect]
     Active Substance: DOXAZOSIN MESYLATE
     Indication: Blood pressure measurement
     Dosage: 8 MG, BID (RETARD), SUSTAINED RELEASE
     Route: 065
  18. DOXAZOSIN [Suspect]
     Active Substance: DOXAZOSIN MESYLATE
     Dosage: 2 DF (8MG), QD
     Route: 065
  19. DOXAZOSIN [Suspect]
     Active Substance: DOXAZOSIN MESYLATE
     Dosage: 8 MG, (2 AND 1/2)
     Route: 065
  20. DOXAZOSIN [Suspect]
     Active Substance: DOXAZOSIN MESYLATE
     Dosage: 4 MG, (HALF-2-2-0)
     Route: 065
  21. DOXAZOSIN [Suspect]
     Active Substance: DOXAZOSIN MESYLATE
     Dosage: 16 MG, UNKNOWN FREQ
     Route: 065
  22. DIGITOXIN [Suspect]
     Active Substance: DIGITOXIN
     Indication: Cardiac disorder
     Dosage: 1 DF, QD ( NOT ON SUNDAYS)
     Route: 065
  23. COTRIMOXAZOLE [Suspect]
     Active Substance: SULFAMETHOXAZOLE\TRIMETHOPRIM
     Indication: Product used for unknown indication
     Dosage: 480 MG
     Route: 065
  24. AMPHOTERICIN B [Suspect]
     Active Substance: AMPHOTERICIN B
     Indication: Product used for unknown indication
     Dosage: 1 DF
     Route: 065
  25. FERROUS GLYCINE SULFATE [Suspect]
     Active Substance: FERROUS GLYCINE SULFATE
     Indication: Product used for unknown indication
     Dosage: 100 MG, QD
     Route: 065
  26. ARANESP [Suspect]
     Active Substance: DARBEPOETIN ALFA
     Indication: Product used for unknown indication
     Dosage: 10 MG, QWK
     Route: 065
  27. MARCUMAR [Suspect]
     Active Substance: PHENPROCOUMON
     Indication: Cardiac disorder
     Dosage: 0.5 DF
     Route: 065
  28. CALCIUM CARBONATE\CHOLECALCIFEROL [Suspect]
     Active Substance: CALCIUM CARBONATE\CHOLECALCIFEROL
     Indication: Product used for unknown indication
     Dosage: 1 DF
     Route: 065
  29. MYFORTIC [Suspect]
     Active Substance: MYCOPHENOLATE SODIUM
     Indication: Transplant
     Dosage: UNK
     Route: 065
  30. TACROLIMUS [Suspect]
     Active Substance: TACROLIMUS
     Indication: Product used for unknown indication
     Dosage: 0.5 MG, BID
     Route: 065
  31. TACROLIMUS [Suspect]
     Active Substance: TACROLIMUS
     Indication: Transplant
     Dosage: 1 MG
     Route: 065
  32. TACROLIMUS [Suspect]
     Active Substance: TACROLIMUS
     Dosage: UNK
     Route: 065
  33. PROGRAF [Suspect]
     Active Substance: TACROLIMUS
     Indication: Transplant
     Dosage: 1 MG, BID
     Route: 065
  34. PROGRAF [Suspect]
     Active Substance: TACROLIMUS
     Indication: Prostate infection
     Dosage: 0.5 MG
     Route: 065
  35. PROGRAF [Suspect]
     Active Substance: TACROLIMUS
     Dosage: 1 MG, BID
     Route: 065
  36. PROGRAF [Suspect]
     Active Substance: TACROLIMUS
     Dosage: 0.5 MG, BID
     Route: 065
  37. PROGRAF [Suspect]
     Active Substance: TACROLIMUS
     Dosage: 0.4 MG, QD
     Route: 065

REACTIONS (49)
  - Renal cyst haemorrhage [Unknown]
  - Blood pressure fluctuation [Not Recovered/Not Resolved]
  - Haemorrhage [Unknown]
  - Swelling [Unknown]
  - Renal artery stenosis [Unknown]
  - Spinal osteoarthritis [Unknown]
  - Atrial fibrillation [Unknown]
  - Carotid arteriosclerosis [Unknown]
  - Hepatic steatosis [Unknown]
  - Basal cell carcinoma [Recovered/Resolved]
  - Vena cava injury [Unknown]
  - Squamous cell carcinoma of skin [Recovered/Resolved]
  - Delayed graft function [Unknown]
  - Thrombosis [Unknown]
  - Bradycardia [Unknown]
  - Chronic kidney disease [Unknown]
  - Arteriosclerosis [Unknown]
  - Aortic arteriosclerosis [Unknown]
  - Spinal stenosis [Unknown]
  - Aortic dilatation [Unknown]
  - Left ventricular hypertrophy [Unknown]
  - Metabolic acidosis [Unknown]
  - Intraductal papillary mucinous neoplasm [Unknown]
  - Atrioventricular block first degree [Unknown]
  - Diverticulum intestinal [Unknown]
  - Oedema peripheral [Unknown]
  - Activated partial thromboplastin time prolonged [Unknown]
  - Benign prostatic hyperplasia [Unknown]
  - Rectal prolapse [Unknown]
  - Blood potassium increased [Unknown]
  - C-reactive protein increased [Unknown]
  - Mean cell volume increased [Recovered/Resolved]
  - Hepatosplenomegaly [Unknown]
  - Gastrooesophageal reflux disease [Unknown]
  - Vitamin D decreased [Recovered/Resolved]
  - Hyperparathyroidism secondary [Unknown]
  - Haemorrhoids [Unknown]
  - Actinic keratosis [Unknown]
  - Presyncope [Unknown]
  - Red blood cell count decreased [Recovered/Resolved]
  - Restless legs syndrome [Unknown]
  - Haemoglobin decreased [Recovered/Resolved]
  - Myalgia [Unknown]
  - Fear [Unknown]
  - SARS-CoV-2 antibody test positive [Unknown]
  - Incorrect dose administered [Unknown]
  - Glycosylated haemoglobin increased [Unknown]
  - Vertigo [Unknown]
  - Dizziness [Unknown]

NARRATIVE: CASE EVENT DATE: 20130401
